FAERS Safety Report 9753238 (Version 3)
Quarter: 2015Q3

REPORT INFORMATION
  Report Type: Spontaneous
  Country: US (occurrence: US)
  Receive Date: 20131213
  Receipt Date: 20150805
  Transmission Date: 20151125
  Serious: No
  Sender: FDA-Public Use
  Company Number: US-GILEAD-2010-0026908

PATIENT
  Age: 42 Year
  Sex: Female
  Weight: 91.17 kg

DRUGS (19)
  1. LETAIRIS [Suspect]
     Active Substance: AMBRISENTAN
     Indication: PULMONARY ARTERIAL HYPERTENSION
     Route: 048
     Dates: start: 20091125, end: 20100112
  2. REVATIO [Concomitant]
     Active Substance: SILDENAFIL CITRATE
  3. ALDACTONE [Concomitant]
     Active Substance: SPIRONOLACTONE
  4. LASIX [Concomitant]
     Active Substance: FUROSEMIDE
  5. ASPIRIN. [Concomitant]
     Active Substance: ASPIRIN
  6. LEVOTHYROXINE. [Concomitant]
     Active Substance: LEVOTHYROXINE
  7. LETAIRIS [Suspect]
     Active Substance: AMBRISENTAN
     Route: 048
     Dates: start: 20100216
  8. PRINIVIL [Concomitant]
     Active Substance: LISINOPRIL
  9. LANOXIN [Concomitant]
     Active Substance: DIGOXIN
  10. LANTUS [Concomitant]
     Active Substance: INSULIN GLARGINE
  11. HUMALOG [Concomitant]
     Active Substance: INSULIN LISPRO
  12. PEPCID [Concomitant]
     Active Substance: FAMOTIDINE
  13. ZOLOFT [Concomitant]
     Active Substance: SERTRALINE HYDROCHLORIDE
  14. VENTAVIS [Concomitant]
     Active Substance: ILOPROST
  15. CLONAZEPAM. [Concomitant]
     Active Substance: CLONAZEPAM
  16. ABILIFY [Concomitant]
     Active Substance: ARIPIPRAZOLE
  17. KLOR-CON [Concomitant]
     Active Substance: POTASSIUM CHLORIDE
  18. COUMADIN [Concomitant]
     Active Substance: WARFARIN SODIUM
  19. TRAZODONE [Concomitant]
     Active Substance: TRAZODONE HYDROCHLORIDE

REACTIONS (1)
  - Liver function test abnormal [Unknown]
